FAERS Safety Report 18665443 (Version 2)
Quarter: 2022Q3

REPORT INFORMATION
  Report Type: Report from Study
  Country: CA (occurrence: CA)
  Receive Date: 20201225
  Receipt Date: 20220711
  Transmission Date: 20221027
  Serious: Yes (Hospitalization, Other)
  Sender: FDA-Public Use
  Company Number: CA-GLAXOSMITHKLINE-CA2020AMR252276

PATIENT

DRUGS (7)
  1. ALBUTEROL SULFATE [Suspect]
     Active Substance: ALBUTEROL SULFATE
     Indication: Product used for unknown indication
     Dosage: 100 UG, PRN
  2. KEFLEX [Suspect]
     Active Substance: CEPHALEXIN
     Indication: Product used for unknown indication
     Dosage: UNK
  3. VITAMIN D [Suspect]
     Active Substance: VITAMIN D NOS
     Indication: Inflammation
     Dosage: UNK
  4. MELOXICAM [Suspect]
     Active Substance: MELOXICAM
     Indication: Product used for unknown indication
     Dosage: 1 DF, QD, 15 MG
  5. PREDNISONE [Suspect]
     Active Substance: PREDNISONE
     Indication: Product used for unknown indication
     Dosage: 5 MG, QD
     Dates: start: 202008
  6. COMBIGAN [Suspect]
     Active Substance: BRIMONIDINE TARTRATE\TIMOLOL MALEATE
     Indication: Product used for unknown indication
     Dosage: UNK UNK, BID
  7. SYMBICORT [Suspect]
     Active Substance: BUDESONIDE\FORMOTEROL FUMARATE DIHYDRATE
     Indication: Product used for unknown indication
     Dosage: UNK UNK, BID

REACTIONS (5)
  - Blindness [Unknown]
  - Ocular discomfort [Unknown]
  - Eosinophilic granulomatosis with polyangiitis [Unknown]
  - Asthma [Unknown]
  - Inflammation [Unknown]

NARRATIVE: CASE EVENT DATE: 20201030
